FAERS Safety Report 6186993-3 (Version None)
Quarter: 2009Q2

REPORT INFORMATION
  Report Type: 
  Country: None (occurrence: None)
  Receive Date: 20090508
  Receipt Date: 20090508
  Transmission Date: 20091009
  Serious: Yes (Life-Threatening, Hospitalization)
  Sender: FDA-Public Use
  Company Number: None

PATIENT
  Age: 65 Year
  Sex: Female
  Weight: 54.4316 kg

DRUGS (1)
  1. SINGULAIR [Suspect]
     Indication: ASTHMA
     Dosage: 10 MG. ONCE A DAY PO
     Route: 048
     Dates: start: 20040125, end: 20041105

REACTIONS (12)
  - ALLERGIC GRANULOMATOUS ANGIITIS [None]
  - ARTHRALGIA [None]
  - BALANCE DISORDER [None]
  - DROOLING [None]
  - GAIT DISTURBANCE [None]
  - JOINT SWELLING [None]
  - MUSCULAR WEAKNESS [None]
  - UNRESPONSIVE TO STIMULI [None]
  - VASCULITIS [None]
  - WALKING AID USER [None]
  - WEIGHT DECREASED [None]
  - WHEELCHAIR USER [None]
